FAERS Safety Report 15643969 (Version 1)
Quarter: 2018Q4

REPORT INFORMATION
  Report Type: Spontaneous
  Country: IN (occurrence: IN)
  Receive Date: 20181121
  Receipt Date: 20181121
  Transmission Date: 20190205
  Serious: Yes (Hospitalization)
  Sender: FDA-Public Use
  Company Number: IN-BAYER-2018-210171

PATIENT
  Age: 21 Year
  Sex: Female
  Weight: 44.6 kg

DRUGS (9)
  1. CYCLOSERIN [Suspect]
     Active Substance: CYCLOSERINE
     Indication: PULMONARY TUBERCULOSIS
     Dosage: 500 MG, QD
     Dates: start: 20170814
  2. CLOFAZIMINE [Suspect]
     Active Substance: CLOFAZIMINE
     Indication: PULMONARY TUBERCULOSIS
     Dosage: 100 MG, QD
     Dates: start: 20170814
  3. LINEZOLID. [Suspect]
     Active Substance: LINEZOLID
     Indication: PULMONARY TUBERCULOSIS
     Dosage: UNK
  4. METOCLOPRAMIDE. [Concomitant]
     Active Substance: METOCLOPRAMIDE
     Dosage: UNK
     Dates: start: 20170814
  5. LINEZOLID. [Suspect]
     Active Substance: LINEZOLID
     Indication: PULMONARY TUBERCULOSIS
     Dosage: 300 MG, QD
     Dates: start: 20170814
  6. PREGABALIN. [Concomitant]
     Active Substance: PREGABALIN
     Dosage: UNK
     Dates: start: 20170814
  7. OMEZ [Concomitant]
     Active Substance: OMEPRAZOLE
     Dosage: UNK
     Dates: start: 20170814
  8. BENADON [Concomitant]
     Active Substance: PYRIDOXINE HYDROCHLORIDE
     Indication: PROPHYLAXIS
     Dosage: 40 MG, UNK
     Dates: start: 20170814
  9. MOXIFLOXACIN IV [Suspect]
     Active Substance: MOXIFLOXACIN
     Indication: PULMONARY TUBERCULOSIS
     Dosage: 400 MG, QD
     Dates: start: 20170814

REACTIONS (13)
  - Blood pressure systolic decreased [Not Recovered/Not Resolved]
  - Asthenia [None]
  - Respiratory rate increased [None]
  - Heart rate increased [None]
  - Myalgia [None]
  - Vomiting [None]
  - Headache [None]
  - Abdominal tenderness [None]
  - Pyrexia [None]
  - Abdominal pain [None]
  - Sepsis [Not Recovered/Not Resolved]
  - Nausea [None]
  - Breath sounds abnormal [None]

NARRATIVE: CASE EVENT DATE: 20181022
